FAERS Safety Report 25990943 (Version 1)
Quarter: 2025Q4

REPORT INFORMATION
  Report Type: Spontaneous
  Country: CH (occurrence: CH)
  Receive Date: 20251103
  Receipt Date: 20251103
  Transmission Date: 20260117
  Serious: Yes (Hospitalization)
  Sender: ELI LILLY AND COMPANY
  Company Number: None

PATIENT
  Age: 23 Year
  Sex: Female
  Weight: 39 kg

DRUGS (5)
  1. SELPERCATINIB [Suspect]
     Active Substance: SELPERCATINIB
     Indication: Thyroid cancer metastatic
     Dosage: 120 MG, BID (3-0-3-0)
     Route: 048
     Dates: start: 20250901, end: 20250909
  2. EUTHYROX [Concomitant]
     Active Substance: LEVOTHYROXINE SODIUM
     Indication: Product used for unknown indication
     Dosage: 125 UG, DAILY
     Route: 048
  3. CALCIUM CARBONATE\CHOLECALCIFEROL [Concomitant]
     Active Substance: CALCIUM CARBONATE\CHOLECALCIFEROL
     Indication: Product used for unknown indication
     Route: 048
  4. METOPROLOL SUCCINATE [Concomitant]
     Active Substance: METOPROLOL SUCCINATE
     Indication: Product used for unknown indication
     Route: 048
  5. CAPRELSA [Concomitant]
     Active Substance: VANDETANIB
     Indication: Thyroid cancer metastatic
     Dosage: 100 MG, CYCLICAL (CYCLE: 6 WEEKS, THERAPY DAYS 1-28, THEN 2 WEEKS BREAK)
     Route: 048
     Dates: end: 202508

REACTIONS (8)
  - Drug-induced liver injury [Recovering/Resolving]
  - Urticaria [Recovered/Resolved]
  - Thrombocytopenia [Recovering/Resolving]
  - Vomiting [Recovering/Resolving]
  - Diarrhoea [Recovering/Resolving]
  - Pyrexia [Recovering/Resolving]
  - Coagulation factor decreased [Unknown]
  - Transaminases increased [Recovering/Resolving]

NARRATIVE: CASE EVENT DATE: 20250910
